FAERS Safety Report 6869692-1 (Version None)
Quarter: 2010Q3

REPORT INFORMATION
  Report Type: 
  Country: None (occurrence: None)
  Receive Date: 20100722
  Receipt Date: 20080825
  Transmission Date: 20110219
  Serious: No
  Sender: FDA-Public Use
  Company Number: US-PFIZER INC-2008068826

PATIENT
  Sex: Female
  Weight: 61.69 kg

DRUGS (12)
  1. CHANTIX [Suspect]
     Indication: SMOKING CESSATION THERAPY
     Dates: start: 20080809
  2. LIPITOR [Concomitant]
  3. TRIAMTERENE [Concomitant]
  4. ATENOLOL [Concomitant]
  5. PREVACID [Concomitant]
  6. LORAZEPAM [Concomitant]
  7. ACETYLSALICYLIC ACID [Concomitant]
  8. CLARINEX [Concomitant]
  9. MULTI-VITAMINS [Concomitant]
  10. POTASSIUM [Concomitant]
  11. FISH OIL [Concomitant]
  12. VITACAL [Concomitant]

REACTIONS (1)
  - NAUSEA [None]
